FAERS Safety Report 25684975 (Version 1)
Quarter: 2025Q3

REPORT INFORMATION
  Report Type: Spontaneous
  Country: US (occurrence: None)
  Receive Date: 20250815
  Receipt Date: 20250815
  Transmission Date: 20251020
  Serious: Yes (Death)
  Sender: FDA-CTU
  Company Number: None

PATIENT
  Age: 76 Year
  Sex: Male

DRUGS (1)
  1. XGEVA [Suspect]
     Active Substance: DENOSUMAB
     Indication: Prostate cancer
     Route: 058
     Dates: start: 20250508

REACTIONS (4)
  - Sepsis [None]
  - Pancreatitis [None]
  - Abdominal pain upper [None]
  - Fall [None]

NARRATIVE: CASE EVENT DATE: 20250727
